FAERS Safety Report 18546570 (Version 1)
Quarter: 2020Q4

REPORT INFORMATION
  Report Type: Report from Study
  Country: ES (occurrence: ES)
  Receive Date: 20201125
  Receipt Date: 20201125
  Transmission Date: 20210114
  Serious: Yes (Hospitalization, Other)
  Sender: FDA-Public Use
  Company Number: ES-GLAXOSMITHKLINE-ES2020206962

PATIENT
  Age: 1 Year
  Sex: Male

DRUGS (2)
  1. BEXSERO [Suspect]
     Active Substance: NEISSERIA MENINGITIDIS GROUP B FHBP FUSION PROTEIN ANTIGEN\NEISSERIA MENINGITIDIS GROUP B NADA PROTEIN ANTIGEN\NEISSERIA MENINGITIDIS GROUP B NHBA FUSION PROTEIN ANTIGEN\NEISSERIA MENINGITIDIS GROUP B STRAIN NZ98/254 OUTER MEMBRANE VESICLE\NEISSERIA MENINGITIDIS SEROGROUP B FHBP FUSION PROTEIN ANTIG
     Indication: PROPHYLAXIS
     Route: 030
     Dates: start: 20200821
  2. RSV CHAD155 VACCINE (5X10E10 VP) [Suspect]
     Active Substance: INVESTIGATIONAL PRODUCT
     Indication: PROPHYLAXIS
     Route: 030
     Dates: start: 20191025

REACTIONS (1)
  - Diabetic ketoacidosis [Not Recovered/Not Resolved]

NARRATIVE: CASE EVENT DATE: 20201015
